FAERS Safety Report 6024295-6 (Version None)
Quarter: 2008Q4

REPORT INFORMATION
  Report Type: 
  Country: None (occurrence: None)
  Receive Date: 20081231
  Receipt Date: 20081229
  Transmission Date: 20090506
  Serious: Yes (Life-Threatening)
  Sender: FDA-Public Use
  Company Number: FR-JNJFOC-20081206786

PATIENT
  Age: 72 Year
  Sex: Female

DRUGS (8)
  1. TAVANIC [Suspect]
     Indication: PYELONEPHRITIS ACUTE
     Route: 042
  2. TAVANIC [Suspect]
     Route: 048
  3. DEROXAT [Interacting]
     Indication: DEPRESSION
     Route: 048
  4. COVERSYL [Concomitant]
     Indication: HYPERTENSION
     Route: 048
  5. KARDEGIC [Concomitant]
     Indication: PROPHYLAXIS
     Route: 048
  6. INEGY [Concomitant]
     Indication: HYPERCHOLESTEROLAEMIA
     Route: 048
  7. EUPANTOL [Concomitant]
     Indication: PROPHYLAXIS
     Route: 048
  8. ALPRAZOLAM [Concomitant]
     Indication: ANXIETY
     Route: 048

REACTIONS (3)
  - BRADYCARDIA [None]
  - DRUG INTERACTION [None]
  - ELECTROCARDIOGRAM QT PROLONGED [None]
